FAERS Safety Report 5920550-6 (Version None)
Quarter: 2008Q4

REPORT INFORMATION
  Report Type: 
  Country: None (occurrence: None)
  Receive Date: 20081015
  Receipt Date: 20081015
  Transmission Date: 20090506
  Serious: Yes (Hospitalization)
  Sender: FDA-Public Use
  Company Number: None

PATIENT
  Age: 33 Year
  Sex: Male
  Weight: 79.5 kg

DRUGS (3)
  1. METHOTREXATE [Suspect]
     Dosage: 6.5 G
  2. RITUXIMAB (MOAB C2B8 ANTI CD20, CHIMERIC) [Suspect]
     Dosage: 700 MG
  3. DEXAMETHASONE [Concomitant]

REACTIONS (4)
  - HEADACHE [None]
  - HYDROCEPHALUS [None]
  - NAUSEA [None]
  - PYREXIA [None]
